FAERS Safety Report 17412169 (Version 1)
Quarter: 2020Q1

REPORT INFORMATION
  Report Type: Spontaneous
  Country: TR (occurrence: TR)
  Receive Date: 20200213
  Receipt Date: 20200213
  Transmission Date: 20200409
  Serious: Yes (Hospitalization, Congenital Anomaly)
  Sender: FDA-Public Use
  Company Number: TR-QUAGEN PHARMA LLC-2020QUALIT00027

PATIENT
  Sex: Female
  Weight: 2.92 kg

DRUGS (1)
  1. PROPYLTHIOURACIL TABLETS USP [Suspect]
     Active Substance: PROPYLTHIOURACIL

REACTIONS (1)
  - Livedo reticularis [Not Recovered/Not Resolved]
